FAERS Safety Report 15764818 (Version 1)
Quarter: 2018Q4

REPORT INFORMATION
  Report Type: Spontaneous
  Country: CA (occurrence: CA)
  Receive Date: 20181227
  Receipt Date: 20181227
  Transmission Date: 20190205
  Serious: Yes (Death)
  Sender: FDA-Public Use
  Company Number: CA-ORION CORPORATION ORION PHARMA-TREX2018-3825

PATIENT
  Age: 68 Year
  Sex: Male

DRUGS (10)
  1. PANTOLOC [Concomitant]
     Active Substance: PANTOPRAZOLE SODIUM
     Route: 048
  2. FERROUS GLUCONATE [Concomitant]
     Active Substance: FERROUS GLUCONATE
     Route: 048
  3. METHOTREXATE (TRADE NAME UNKNOWN) [Suspect]
     Active Substance: METHOTREXATE
     Indication: RHEUMATOID ARTHRITIS
     Route: 048
  4. XELJANZ [Suspect]
     Active Substance: TOFACITINIB CITRATE
     Indication: RHEUMATOID ARTHRITIS
     Route: 048
     Dates: start: 20170309
  5. ACTONEL [Concomitant]
     Active Substance: RISEDRONATE SODIUM
     Route: 048
  6. FOLIC ACID. [Concomitant]
     Active Substance: FOLIC ACID
     Route: 048
  7. COLACE [Concomitant]
     Active Substance: DOCUSATE SODIUM
     Indication: CONSTIPATION
     Dosage: AS NEEDED (ONCE OR TWICE DAILY)
     Route: 048
  8. HYDROXYCHLOROQUINE [Concomitant]
     Active Substance: HYDROXYCHLOROQUINE
     Route: 048
  9. SPIRIVA [Concomitant]
     Active Substance: TIOTROPIUM BROMIDE MONOHYDRATE
     Route: 055
  10. SULFASALAZINE. [Concomitant]
     Active Substance: SULFASALAZINE
     Indication: RHEUMATOID ARTHRITIS
     Dosage: 1500 MG MORNING, 1000 MG NIGHT
     Route: 048
     Dates: end: 20170504

REACTIONS (1)
  - Death [Fatal]

NARRATIVE: CASE EVENT DATE: 20181213
